FAERS Safety Report 8541249 (Version 3)
Quarter: 2012Q4

REPORT INFORMATION
  Report Type: 
  Country: US (occurrence: US)
  Receive Date: 20120502
  Receipt Date: 20121123
  Transmission Date: 20130627
  Serious: Yes (Other)
  Sender: FDA-Public Use
  Company Number: PHEH2012US009090

PATIENT
  Age: 32 Year
  Sex: Female
  Weight: 67.12 kg

DRUGS (6)
  1. GILENYA [Suspect]
     Indication: MULTIPLE SCLEROSIS
     Dosage: 0.5 mg, daily
     Route: 048
     Dates: start: 20120320
  2. ZESTRIL [Concomitant]
     Indication: BLOOD PRESSURE INCREASED
     Dosage: 10 mg, QD
     Route: 048
  3. GABAPENTIN [Concomitant]
  4. NABUMETONE [Concomitant]
  5. HYDROXYZINE [Concomitant]
  6. MIDOL [Concomitant]
     Indication: HEADACHE

REACTIONS (7)
  - Scotoma [Not Recovered/Not Resolved]
  - Blood pressure increased [Recovered/Resolved]
  - Dizziness [Recovered/Resolved]
  - Neck pain [Recovered/Resolved]
  - Oropharyngeal pain [Not Recovered/Not Resolved]
  - Vision blurred [Not Recovered/Not Resolved]
  - Headache [Not Recovered/Not Resolved]
